FAERS Safety Report 4497096-8 (Version None)
Quarter: 2004Q3

REPORT INFORMATION
  Report Type: 
  Country: None (occurrence: None)
  Receive Date: 20040927
  Receipt Date: 20040524
  Transmission Date: 20050211
  Serious: No
  Sender: FDA-Public Use
  Company Number: USA040568408

PATIENT
  Age: 21 Year
  Sex: Male
  Weight: 94 kg

DRUGS (4)
  1. STRATTERA [Suspect]
     Indication: ATTENTION DEFICIT/HYPERACTIVITY DISORDER
     Dosage: 80 MG DAY
     Dates: start: 20040305
  2. BUPROPION HCL [Concomitant]
  3. EFFEXOR [Concomitant]
  4. METHYLPHENIDATE - SLOW RELEASE [Concomitant]

REACTIONS (3)
  - ATTENTION DEFICIT/HYPERACTIVITY DISORDER [None]
  - DEPRESSION [None]
  - DRUG INEFFECTIVE [None]
